FAERS Safety Report 20089054 (Version 7)
Quarter: 2024Q3

REPORT INFORMATION
  Report Type: Report from Study
  Country: US (occurrence: US)
  Receive Date: 20211119
  Receipt Date: 20240717
  Transmission Date: 20241017
  Serious: Yes (Other)
  Sender: ABBVIE
  Company Number: US-ABBVIE-21K-163-4127777-00

PATIENT
  Age: 60 Year
  Sex: Male

DRUGS (5)
  1. HUMIRA [Suspect]
     Active Substance: ADALIMUMAB
     Indication: Colitis ulcerative
     Dosage: CITRATE FREE
     Route: 058
  2. HUMIRA [Suspect]
     Active Substance: ADALIMUMAB
     Dosage: CITRATE FREE
     Route: 058
     Dates: start: 20160503
  3. HUMIRA [Suspect]
     Active Substance: ADALIMUMAB
     Dosage: CITRATE FREE
     Route: 058
  4. PFIZER-BIONTECH COVID-19 VACCINE [Concomitant]
     Active Substance: TOZINAMERAN
     Indication: COVID-19 immunisation
     Dosage: FIRST DOSE, ONCE
     Route: 030
     Dates: start: 20210331, end: 20210331
  5. PFIZER-BIONTECH COVID-19 VACCINE [Concomitant]
     Active Substance: TOZINAMERAN
     Indication: COVID-19 immunisation
     Dosage: SECOND DOSE, ONCE
     Route: 030
     Dates: start: 20210421, end: 20210421

REACTIONS (16)
  - Hip arthroplasty [Unknown]
  - Chest pain [Unknown]
  - Deafness [Unknown]
  - Hernia [Unknown]
  - Spinal osteoarthritis [Unknown]
  - Procedural pain [Unknown]
  - Malaise [Unknown]
  - Mobility decreased [Unknown]
  - Haemorrhage [Unknown]
  - Large intestine polyp [Unknown]
  - Pain [Recovered/Resolved]
  - Injection site pain [Recovered/Resolved]
  - Colitis ulcerative [Not Recovered/Not Resolved]
  - Blood pressure increased [Unknown]
  - Nephrolithiasis [Unknown]
  - Chronic obstructive pulmonary disease [Unknown]

NARRATIVE: CASE EVENT DATE: 20211001
